FAERS Safety Report 14703713 (Version 2)
Quarter: 2018Q2

REPORT INFORMATION
  Report Type: Spontaneous
  Country: US (occurrence: US)
  Receive Date: 20180402
  Receipt Date: 20180508
  Transmission Date: 20180711
  Serious: No
  Sender: FDA-Public Use
  Company Number: US-PFIZER INC-2018128392

PATIENT
  Age: 31 Year
  Sex: Female

DRUGS (1)
  1. XELJANZ XR [Suspect]
     Active Substance: TOFACITINIB CITRATE
     Indication: ARTHRITIS
     Dosage: 11 MG, DAILY (EVERY DAY)
     Route: 048

REACTIONS (13)
  - Sleep disorder [Unknown]
  - Liver function test increased [Unknown]
  - Arthralgia [Not Recovered/Not Resolved]
  - Myalgia [Unknown]
  - Product use in unapproved indication [Unknown]
  - Back pain [Unknown]
  - Pain [Unknown]
  - Gait disturbance [Unknown]
  - Musculoskeletal disorder [Unknown]
  - Muscular weakness [Unknown]
  - Condition aggravated [Unknown]
  - Joint stiffness [Unknown]
  - Fatigue [Unknown]
